FAERS Safety Report 9440016 (Version 1)
Quarter: 2013Q3

REPORT INFORMATION
  Report Type: Spontaneous
  Country: US (occurrence: US)
  Receive Date: 20130805
  Receipt Date: 20130805
  Transmission Date: 20140515
  Serious: No
  Sender: FDA-Public Use
  Company Number: US-MYLANLABS-2013S1010497

PATIENT
  Sex: Male

DRUGS (2)
  1. ROPINIROLE EXTENDED-RELEASE TABLETS 12MG (ROPINIROLE) [Suspect]
     Indication: PARKINSON^S DISEASE
     Dates: start: 20130412, end: 2013
  2. SINEMET [Concomitant]
     Indication: PARKINSON^S DISEASE
     Dosage: 200/50 - TAKING 1.5 PILLS

REACTIONS (3)
  - Drug effect increased [Recovering/Resolving]
  - Dyskinesia [Recovering/Resolving]
  - Nausea [Recovering/Resolving]
